FAERS Safety Report 18781393 (Version 1)
Quarter: 2021Q1

REPORT INFORMATION
  Report Type: Spontaneous
  Country: US (occurrence: US)
  Receive Date: 20210122
  Receipt Date: 20210122
  Transmission Date: 20210419
  Serious: No
  Sender: FDA-Public Use
  Company Number: None

PATIENT
  Age: 90 Year
  Sex: Male
  Weight: 74 kg

DRUGS (1)
  1. OLODATEROL/TIOTROPIUM (OLODATEROL 2.5MCG/TIOTROPIUM 2.5MCG/ACTUAT INHL [Suspect]
     Active Substance: OLODATEROL HYDROCHLORIDE\TIOTROPIUM BROMIDE MONOHYDRATE
     Route: 055
     Dates: start: 20200116, end: 20200814

REACTIONS (1)
  - Dizziness [None]

NARRATIVE: CASE EVENT DATE: 20201009
